FAERS Safety Report 9411262 (Version 1)
Quarter: 2013Q3

REPORT INFORMATION
  Report Type: Spontaneous
  Country: US (occurrence: US)
  Receive Date: 20130722
  Receipt Date: 20130722
  Transmission Date: 20140515
  Serious: No
  Sender: FDA-Public Use
  Company Number: US-009507513-1307USA007865

PATIENT
  Age: 76 Year
  Sex: Male

DRUGS (11)
  1. REMERON [Suspect]
     Indication: DEPRESSION
     Dosage: 45 MG, HS
     Dates: start: 201206, end: 201208
  2. REMERON [Suspect]
     Dosage: 45 MG, HS
     Dates: start: 200611, end: 200612
  3. ARIPIPRAZOLE [Concomitant]
     Indication: BIPOLAR DISORDER
     Dosage: 30 MG, QD
     Dates: start: 200611, end: 200612
  4. ARIPIPRAZOLE [Concomitant]
     Dosage: 30 MG, QD
     Dates: start: 201206, end: 201208
  5. VENLAFAXINE HYDROCHLORIDE [Concomitant]
     Dosage: 300 MG EXTENDED RELEASE,QD
     Dates: start: 200611, end: 200612
  6. VENLAFAXINE HYDROCHLORIDE [Concomitant]
     Dosage: 225 MG, QD
     Dates: start: 201206, end: 201208
  7. GALANTAMINE [Suspect]
     Indication: COGNITIVE DISORDER
     Dosage: 4 MG, BID
     Dates: start: 2006, end: 2006
  8. LORAZEPAM [Concomitant]
     Dosage: 0.5 MG, PRN
     Dates: start: 200710
  9. ZOLPIDEM TARTRATE [Suspect]
     Dosage: 6.25 MG, HS
     Dates: start: 200711
  10. QUETIAPINE FUMARATE [Suspect]
     Dosage: 300 MG, HS
     Dates: end: 201206
  11. QUETIAPINE FUMARATE [Suspect]
     Dosage: 600 MG, QD, IN DIVIDED DOSES
     Dates: start: 201206

REACTIONS (1)
  - Somnambulism [Recovered/Resolved]
